FAERS Safety Report 5644156-1 (Version None)
Quarter: 2008Q1

REPORT INFORMATION
  Report Type: 
  Country: None (occurrence: None)
  Receive Date: 20080227
  Receipt Date: 20080212
  Transmission Date: 20080703
  Serious: Yes (Congenital Anomaly)
  Sender: FDA-Public Use
  Company Number: 12944

PATIENT
  Sex: Female

DRUGS (1)
  1. PRENATAL RX 1 MULTIVITAMIN/MINERAL SUPPLEMENT (ETHEX) [Suspect]
     Indication: PRENATAL CARE
     Dosage: ONE TABLET DAILY

REACTIONS (4)
  - CONGENITAL ANOMALY [None]
  - DRUG EXPOSURE DURING PREGNANCY [None]
  - PREGNANCY [None]
  - SPINA BIFIDA [None]
